FAERS Safety Report 4980818-7 (Version None)
Quarter: 2006Q2

REPORT INFORMATION
  Report Type: 
  Country: None (occurrence: None)
  Receive Date: 20060418
  Receipt Date: 20060403
  Transmission Date: 20061013
  Serious: Yes (Other)
  Sender: FDA-Public Use
  Company Number: 29012

PATIENT
  Age: 52 Year
  Sex: Male

DRUGS (4)
  1. FLECAINIDE ACETATE (ORAL) (FLECAINIDE ACETATE) (50 MG, TABLETS) [Suspect]
     Indication: ATRIAL FIBRILLATION
     Dosage: 50 MG 2 IN 1 DAY(S)), ORAL
     Route: 048
     Dates: start: 20060220, end: 20060324
  2. HYZAAR [Suspect]
     Indication: HYPERTENSION
     Dosage: ORAL
     Route: 048
     Dates: start: 20060101
  3. DIGITEX (TABLETS) [Suspect]
     Indication: ATRIAL FIBRILLATION
     Dosage: ORAL
     Route: 048
     Dates: start: 20060101
  4. CARDIZEM [Suspect]
     Indication: HYPERTENSION
     Dosage: ORAL
     Route: 048
     Dates: start: 20060220

REACTIONS (8)
  - FACE INJURY [None]
  - FALL [None]
  - MUSCULOSKELETAL STIFFNESS [None]
  - MYALGIA [None]
  - NEUROPATHY PERIPHERAL [None]
  - PAIN [None]
  - RIB FRACTURE [None]
  - WHIPLASH INJURY [None]
